FAERS Safety Report 11584610 (Version 1)
Quarter: 2015Q4

REPORT INFORMATION
  Report Type: Spontaneous
  Country: JP (occurrence: JP)
  Receive Date: 20151001
  Receipt Date: 20151001
  Transmission Date: 20160304
  Serious: Yes (Death)
  Sender: FDA-Public Use
  Company Number: JP-BRACCO-009443

PATIENT
  Age: 43 Year
  Sex: Male

DRUGS (1)
  1. IOPAMIRON [Suspect]
     Active Substance: IOPAMIDOL
     Indication: DIAGNOSTIC PROCEDURE
     Dates: start: 201401, end: 201401

REACTIONS (3)
  - Hypoxic-ischaemic encephalopathy [Fatal]
  - Multi-organ failure [Fatal]
  - Anaphylactic shock [Fatal]
